FAERS Safety Report 7870489-4 (Version None)
Quarter: 2011Q4

REPORT INFORMATION
  Report Type: 
  Country: None (occurrence: None)
  Receive Date: 20111029
  Receipt Date: 20110216
  Transmission Date: 20120403
  Serious: No
  Sender: FDA-Public Use
  Company Number: US-AMGEN-USASP2011009306

PATIENT
  Age: 67 Year
  Sex: Male

DRUGS (4)
  1. HUMIRA [Concomitant]
  2. ENBREL [Suspect]
     Indication: RHEUMATOID ARTHRITIS
     Dates: start: 20090710
  3. METHOTREXATE [Concomitant]
     Dates: start: 20100101
  4. PREDNISONE [Concomitant]

REACTIONS (6)
  - SWELLING FACE [None]
  - WEIGHT INCREASED [None]
  - THERAPEUTIC RESPONSE DECREASED [None]
  - PAIN IN EXTREMITY [None]
  - NECK PAIN [None]
  - ARTHRALGIA [None]
